FAERS Safety Report 24912754 (Version 1)
Quarter: 2025Q1

REPORT INFORMATION
  Report Type: Spontaneous
  Country: CN (occurrence: CN)
  Receive Date: 20250131
  Receipt Date: 20250131
  Transmission Date: 20250409
  Serious: Yes (Other)
  Sender: ROCHE
  Company Number: CN-ROCHE-10000190544

PATIENT
  Age: 67 Year
  Sex: Male

DRUGS (1)
  1. KADCYLA [Suspect]
     Active Substance: ADO-TRASTUZUMAB EMTANSINE
     Indication: Gastric cancer
     Route: 065

REACTIONS (4)
  - Platelet count decreased [Unknown]
  - Hypersensitivity [Unknown]
  - Epistaxis [Unknown]
  - Off label use [Unknown]
